FAERS Safety Report 18326189 (Version 1)
Quarter: 2020Q3

REPORT INFORMATION
  Report Type: Spontaneous
  Country: IN (occurrence: IN)
  Receive Date: 20200929
  Receipt Date: 20200929
  Transmission Date: 20201103
  Serious: Yes (Other)
  Sender: FDA-Public Use
  Company Number: IN-MYLANLABS-2020M1082526

PATIENT
  Age: 55 Year
  Sex: Male

DRUGS (1)
  1. FLUOROURACIL. [Suspect]
     Active Substance: FLUOROURACIL
     Indication: OCULAR SURFACE SQUAMOUS NEOPLASIA
     Dosage: EYE DROPS
     Route: 061

REACTIONS (1)
  - Skin necrosis [Recovering/Resolving]
